APPROVED DRUG PRODUCT: MILNACIPRAN HYDROCHLORIDE
Active Ingredient: MILNACIPRAN HYDROCHLORIDE
Strength: 25MG
Dosage Form/Route: TABLET;ORAL
Application: A205081 | Product #002 | TE Code: AB
Applicant: AMNEAL PHARMACEUTICALS
Approved: Apr 22, 2016 | RLD: No | RS: No | Type: RX